FAERS Safety Report 5961635-8 (Version None)
Quarter: 2008Q4

REPORT INFORMATION
  Report Type: 
  Country: None (occurrence: None)
  Receive Date: 20081121
  Receipt Date: 20081113
  Transmission Date: 20090506
  Serious: Yes (Disabling)
  Sender: FDA-Public Use
  Company Number: PT-AVENTIS-200820661GDDC

PATIENT
  Age: 18 Year
  Sex: Male

DRUGS (4)
  1. FLAGYL [Suspect]
     Route: 048
     Dates: start: 20080907, end: 20080925
  2. FLAGYL [Suspect]
     Route: 048
     Dates: start: 20080926, end: 20081108
  3. INFLIXIMAB [Concomitant]
     Dosage: DOSE: UNK
  4. AZATHIOPRINE [Concomitant]
     Dosage: DOSE: UNK

REACTIONS (3)
  - NEURALGIA [None]
  - PARAESTHESIA [None]
  - PERIPHERAL SENSORY NEUROPATHY [None]
